FAERS Safety Report 13475867 (Version 14)
Quarter: 2021Q2

REPORT INFORMATION
  Report Type: Report from Study
  Country: CA (occurrence: CA)
  Receive Date: 20170425
  Receipt Date: 20210422
  Transmission Date: 20210716
  Serious: Yes (Hospitalization, Other)
  Sender: FDA-Public Use
  Company Number: PHHY2012CA083127

PATIENT
  Age: 78 Year
  Sex: Male

DRUGS (9)
  1. SANDOSTATIN [Suspect]
     Active Substance: OCTREOTIDE ACETATE
     Indication: PANCREATIC NEUROENDOCRINE TUMOUR
     Dosage: 100 UG, TID (FOR 2 WEEKS)
     Route: 058
  2. SANDOSTATIN [Suspect]
     Active Substance: OCTREOTIDE ACETATE
  3. SANDOSTATIN LAR DEPOT [Suspect]
     Active Substance: OCTREOTIDE ACETATE
     Dosage: 20 MG, QMO (EVERY 4 WEEKS)
     Route: 030
     Dates: start: 20121025, end: 20160915
  4. SANDOSTATIN LAR DEPOT [Suspect]
     Active Substance: OCTREOTIDE ACETATE
     Indication: PANCREATIC NEUROENDOCRINE TUMOUR
     Dosage: 30 MG, QMO (EVERY 4 WEEKS)
     Route: 030
     Dates: start: 20120919
  5. CRESTOR [Concomitant]
     Active Substance: ROSUVASTATIN CALCIUM
     Indication: PRODUCT USED FOR UNKNOWN INDICATION
     Dosage: UNK
     Route: 065
  6. LASIX [Concomitant]
     Active Substance: FUROSEMIDE
     Indication: PRODUCT USED FOR UNKNOWN INDICATION
     Dosage: 40 MG, QD
     Route: 065
  7. CRESTOR [Concomitant]
     Active Substance: ROSUVASTATIN CALCIUM
     Dosage: 5 MG, UNK
     Route: 065
  8. SANDOSTATIN [Suspect]
     Active Substance: OCTREOTIDE ACETATE
  9. SANDOSTATIN LAR DEPOT [Suspect]
     Active Substance: OCTREOTIDE ACETATE
     Dosage: 30 MG, QMO
     Route: 030
     Dates: start: 20161014

REACTIONS (23)
  - Heart rate decreased [Unknown]
  - Blood pressure systolic increased [Unknown]
  - Renal cyst [Unknown]
  - Abdominal pain [Recovering/Resolving]
  - Conjunctival haemorrhage [Unknown]
  - Diarrhoea [Recovering/Resolving]
  - Muscle spasms [Unknown]
  - Pain in extremity [Unknown]
  - Injection site mass [Unknown]
  - Blood pressure diastolic decreased [Unknown]
  - Muscle disorder [Unknown]
  - Asthenia [Recovering/Resolving]
  - Injection site haemorrhage [Unknown]
  - Coronary artery stenosis [Unknown]
  - Dyspnoea [Unknown]
  - Night sweats [Unknown]
  - Feeling abnormal [Recovering/Resolving]
  - Blood pressure inadequately controlled [Unknown]
  - Dizziness postural [Unknown]
  - Therapy non-responder [Unknown]
  - Pulmonary oedema [Unknown]
  - Atrial tachycardia [Unknown]
  - Anaemia [Unknown]

NARRATIVE: CASE EVENT DATE: 20120920
